FAERS Safety Report 15791660 (Version 1)
Quarter: 2019Q1

REPORT INFORMATION
  Report Type: Spontaneous
  Country: IT (occurrence: IT)
  Receive Date: 20190105
  Receipt Date: 20190105
  Transmission Date: 20190417
  Serious: Yes (Other)
  Sender: FDA-Public Use
  Company Number: IT-ACCORD-100542

PATIENT
  Age: 48 Year
  Sex: Female

DRUGS (4)
  1. LIBRIUM [Concomitant]
     Active Substance: CHLORDIAZEPOXIDE HYDROCHLORIDE
     Indication: ANXIETY
     Route: 048
  2. NALTREXONE/NALTREXONE HYDROCHLORIDE [Suspect]
     Active Substance: NALTREXONE
     Indication: PRODUCT USED FOR UNKNOWN INDICATION
  3. HALCION [Concomitant]
     Active Substance: TRIAZOLAM
  4. XANAX [Concomitant]
     Active Substance: ALPRAZOLAM

REACTIONS (3)
  - Intentional self-injury [Unknown]
  - Atrioventricular block [Unknown]
  - Intentional overdose [Unknown]

NARRATIVE: CASE EVENT DATE: 20180511
